FAERS Safety Report 8021013-7 (Version None)
Quarter: 2011Q4

REPORT INFORMATION
  Report Type: 
  Country: None (occurrence: None)
  Receive Date: 20111229
  Receipt Date: 20111214
  Transmission Date: 20120403
  Serious: Yes (Life-Threatening)
  Sender: FDA-Public Use
  Company Number: NL-DEXPHARM-20112059

PATIENT
  Age: 51 Year
  Sex: Male

DRUGS (2)
  1. CEFAZOLIN [Concomitant]
  2. CHLORHEXIDINE GLUCONATE [Suspect]

REACTIONS (5)
  - ANAPHYLACTIC REACTION [None]
  - URTICARIA [None]
  - CARDIOPULMONARY FAILURE [None]
  - SHOCK [None]
  - NAUSEA [None]
